FAERS Safety Report 9806407 (Version 1)
Quarter: 2014Q1

REPORT INFORMATION
  Report Type: Spontaneous
  Country: US (occurrence: US)
  Receive Date: 20140109
  Receipt Date: 20140109
  Transmission Date: 20141002
  Serious: Yes (Death, Hospitalization, Other)
  Sender: FDA-Public Use
  Company Number: US-UCBSA-107928

PATIENT
  Age: 39 Year
  Sex: Male

DRUGS (6)
  1. ALPRAZOLAM [Suspect]
     Dosage: INGESTION
     Route: 048
  2. ETHANOL [Suspect]
     Dosage: INGESTION
     Route: 048
  3. ACETAMINOPHEN [Suspect]
     Dosage: INGESTION
     Route: 048
  4. CHLORDIAZEPOXIDE [Suspect]
     Dosage: INGESTION
     Route: 048
  5. METHADONE [Suspect]
     Dosage: INGESTION
     Route: 048
  6. DIPHENHYDRAMINE [Suspect]
     Dosage: INGESTION
     Route: 048

REACTIONS (2)
  - Cardio-respiratory arrest [Fatal]
  - Completed suicide [Fatal]
